FAERS Safety Report 23212501 (Version 2)
Quarter: 2025Q1

REPORT INFORMATION
  Report Type: Spontaneous
  Country: BR (occurrence: BR)
  Receive Date: 20231121
  Receipt Date: 20250305
  Transmission Date: 20250409
  Serious: Yes (Other)
  Sender: SANDOZ
  Company Number: BR-002147023-NVSC2023BR243214

PATIENT
  Sex: Female

DRUGS (7)
  1. ATORVASTATIN [Suspect]
     Active Substance: ATORVASTATIN
     Indication: Blood cholesterol
     Dosage: 2 DF, QD (MANY YEARS AGO)
     Route: 048
  2. BRIMONIDINE [Suspect]
     Active Substance: BRIMONIDINE TARTRATE
     Indication: Glaucoma
     Route: 065
  3. FLUOXETINE [Suspect]
     Active Substance: FLUOXETINE HYDROCHLORIDE
     Indication: Anxiety
     Dosage: 2 DF, QD, 1 DF, BID (30 YEARS AGO)
     Route: 048
  4. TRAVOPROST [Suspect]
     Active Substance: TRAVOPROST
     Indication: Glaucoma
     Route: 065
  5. BISOPROLOL FUMARATE [Concomitant]
     Active Substance: BISOPROLOL FUMARATE
     Indication: Cardiac disorder
     Dosage: 1 DF, QD (MANY YEARS AGO)
     Route: 048
  6. CIPROFIBRATE [Concomitant]
     Active Substance: CIPROFIBRATE
     Indication: Blood triglycerides
     Dosage: 1 DF, QD  (MANY YEARS AGO)
     Route: 048
  7. Venaflon [Concomitant]
     Indication: Cardiovascular disorder
     Dosage: 2 DF, QD, 1 DF, BID (MANY YEARS AGO, 450 MG+50 MG)
     Route: 048

REACTIONS (1)
  - Cardiac failure [Unknown]
